FAERS Safety Report 5750343-4 (Version None)
Quarter: 2008Q2

REPORT INFORMATION
  Report Type: 
  Country: None (occurrence: None)
  Receive Date: 20080528
  Receipt Date: 20080519
  Transmission Date: 20081010
  Serious: Yes (Hospitalization, Other)
  Sender: FDA-Public Use
  Company Number: FR-JNJFOC-20080406740

PATIENT
  Sex: Male
  Weight: 75 kg

DRUGS (6)
  1. RISPERDAL [Suspect]
     Indication: PSYCHOTIC DISORDER
     Route: 048
  2. ZYPREXA [Suspect]
     Indication: PSYCHOTIC DISORDER
     Route: 048
  3. TERCIAN [Suspect]
     Indication: PSYCHOTIC DISORDER
     Route: 048
  4. LOVENOX [Concomitant]
     Indication: MUSCLE SPASMS
  5. VALIUM [Concomitant]
     Indication: ANXIETY
     Route: 048
  6. HEPTAMYL [Concomitant]
     Indication: HYPOTENSION
     Route: 048

REACTIONS (2)
  - LEUKOPENIA [None]
  - NEUTROPHIL COUNT DECREASED [None]
